FAERS Safety Report 11282507 (Version 1)
Quarter: 2015Q3

REPORT INFORMATION
  Report Type: Report from Study
  Country: GB (occurrence: GB)
  Receive Date: 20150720
  Receipt Date: 20150720
  Transmission Date: 20151125
  Serious: Yes (Hospitalization, Other)
  Sender: FDA-Public Use
  Company Number: GB-ACCORD-032208

PATIENT
  Age: 6 Year
  Sex: Male
  Weight: 22 kg

DRUGS (5)
  1. ALFACALCIDOL [Concomitant]
     Active Substance: ALFACALCIDOL
     Indication: RENAL OSTEODYSTROPHY
     Dosage: 400 NG, QD
     Route: 065
  2. SIROLIMUS. [Suspect]
     Active Substance: SIROLIMUS
     Indication: RENAL TRANSPLANT
     Dosage: 2 MG, BID
     Route: 065
     Dates: end: 20150613
  3. PREDNISOLONE. [Suspect]
     Active Substance: PREDNISOLONE
     Indication: RENAL TRANSPLANT
     Dosage: 7.5 MG (ALTERNATE DAYS)
     Route: 065
     Dates: end: 20150613
  4. CLOBAZAM [Concomitant]
     Active Substance: CLOBAZAM
     Indication: PROPHYLAXIS
     Dosage: 2.5 MG, QD
     Route: 065
  5. MYCOPHENOLIC ACID. [Suspect]
     Active Substance: MYCOPHENOLIC ACID
     Indication: RENAL TRANSPLANT
     Route: 065
     Dates: end: 20150614

REACTIONS (4)
  - Staphylococcal infection [Recovering/Resolving]
  - Sepsis [Unknown]
  - Vomiting [Unknown]
  - Hypophagia [Unknown]

NARRATIVE: CASE EVENT DATE: 20150613
